FAERS Safety Report 9511575 (Version 1)
Quarter: 2013Q3

REPORT INFORMATION
  Report Type: Spontaneous
  Country: US (occurrence: None)
  Receive Date: 20130909
  Receipt Date: 20130909
  Transmission Date: 20140515
  Serious: Yes (Hospitalization, Disabling)
  Sender: FDA-Public Use
  Company Number: None

PATIENT
  Age: 22 Year
  Sex: Male
  Weight: 86.18 kg

DRUGS (1)
  1. CIPROFLOXACIN 500 MG BAY [Suspect]
     Indication: PROPHYLAXIS
     Dosage: 500 MG TWICE DAILY TAKEN BY MOUTH
     Route: 048
     Dates: start: 20130519, end: 20130520

REACTIONS (10)
  - Syncope [None]
  - Asthenia [None]
  - Hypoaesthesia [None]
  - Hypoaesthesia [None]
  - Disturbance in attention [None]
  - Dizziness [None]
  - Insomnia [None]
  - Dizziness [None]
  - Neuropathy peripheral [None]
  - Neurotoxicity [None]
